FAERS Safety Report 4286326-3 (Version None)
Quarter: 2004Q1

REPORT INFORMATION
  Report Type: 
  Country: None (occurrence: None)
  Receive Date: 20040116
  Receipt Date: 20030919
  Transmission Date: 20041129
  Serious: Yes (Other)
  Sender: FDA-Public Use
  Company Number: 347311

PATIENT
  Age: 23 Month
  Sex: Male
  Weight: 12.7 kg

DRUGS (3)
  1. VERSED [Suspect]
     Indication: SEDATION
     Dates: start: 20030904, end: 20030904
  2. NEMBUTAL [Suspect]
     Indication: PREMEDICATION
     Dosage: 38 MG
     Dates: start: 20030904, end: 20030904
  3. FENTANYL CITRATE [Suspect]
     Indication: SEDATION
     Dates: start: 20030904, end: 20030904

REACTIONS (1)
  - AGITATION [None]
